FAERS Safety Report 7769366-9 (Version None)
Quarter: 2011Q3

REPORT INFORMATION
  Report Type: 
  Country: None (occurrence: None)
  Receive Date: 20110922
  Receipt Date: 20101206
  Transmission Date: 20111222
  Serious: No
  Sender: FDA-Public Use
  Company Number: US-ASTRAZENECA-2010SE57968

PATIENT
  Age: 615 Month
  Sex: Female
  Weight: 64.4 kg

DRUGS (4)
  1. KLONOPIN [Concomitant]
  2. LITHIUM CARBONATE [Concomitant]
  3. TEGRETOL [Concomitant]
  4. SEROQUEL [Suspect]
     Indication: BIPOLAR DISORDER
     Route: 048
     Dates: start: 20100301, end: 20100901

REACTIONS (5)
  - DRUG DOSE OMISSION [None]
  - DIABETES MELLITUS [None]
  - INSOMNIA [None]
  - WEIGHT DECREASED [None]
  - HYPERCHOLESTEROLAEMIA [None]
